FAERS Safety Report 9768421 (Version 1)
Quarter: 2013Q4

REPORT INFORMATION
  Report Type: Spontaneous
  Country: US (occurrence: US)
  Receive Date: 20131217
  Receipt Date: 20131217
  Transmission Date: 20140711
  Serious: Yes (Other)
  Sender: FDA-Public Use
  Company Number: GXBR2013US002127

PATIENT
  Sex: Male
  Weight: 89.8 kg

DRUGS (4)
  1. SOLARAZE [Suspect]
     Indication: ACTINIC KERATOSIS
     Dosage: UNK DF, UNK
     Route: 061
     Dates: start: 2011, end: 2013
  2. AVAPRO [Concomitant]
     Indication: HYPERTENSION
     Dosage: UNK DF, UNK
  3. PRAVASTATIN [Concomitant]
     Indication: BLOOD CHOLESTEROL INCREASED
     Dosage: UNK DF, UNK
  4. LEVOTHYROXINE [Concomitant]
     Indication: THYROID DISORDER
     Dosage: UNK DF, UNK

REACTIONS (7)
  - Myasthenic syndrome [Recovered/Resolved]
  - Eyelid ptosis [Recovered/Resolved]
  - Eye pain [Recovered/Resolved]
  - Diplopia [Recovered/Resolved]
  - Asthenia [Recovered/Resolved]
  - Malaise [Recovered/Resolved]
  - Expired drug administered [Recovered/Resolved]
